FAERS Safety Report 9901072 (Version 2)
Quarter: 2014Q1

REPORT INFORMATION
  Report Type: Spontaneous
  Country: US (occurrence: US)
  Receive Date: 20140217
  Receipt Date: 20140307
  Transmission Date: 20141002
  Serious: Yes (Other)
  Sender: FDA-Public Use
  Company Number: US-PFIZER INC-2014038979

PATIENT
  Age: 79 Year
  Sex: Male
  Weight: 93 kg

DRUGS (11)
  1. SUTENT [Suspect]
     Indication: GASTROINTESTINAL STROMAL TUMOUR
     Dosage: 37.5 MG, DAILY
     Route: 048
     Dates: start: 20140104
  2. ALEVE [Concomitant]
     Dosage: UNK
  3. ASPIRIN [Concomitant]
     Dosage: 81 MG, DAILY
  4. CALCIUM [Concomitant]
     Dosage: UNK, DAILY
  5. FISH OIL [Concomitant]
     Dosage: UNK
  6. GLUCOSAMINE [Concomitant]
     Dosage: 1X/DAY
  7. SYNTHROID [Concomitant]
     Dosage: 50 UG, DAILY
  8. METOPROLOL TARTRATE [Concomitant]
     Dosage: 25 MG, 2X/DAY
  9. TYLENOL [Concomitant]
     Dosage: UNK
  10. VITAMIN C [Concomitant]
     Dosage: UNK, DAILY
  11. VESICARE [Concomitant]
     Dosage: 5 MG, DAILY

REACTIONS (12)
  - Hypertension [Recovering/Resolving]
  - Hypoacusis [Unknown]
  - Feeling abnormal [Unknown]
  - Headache [Recovered/Resolved]
  - Nausea [Recovering/Resolving]
  - Vomiting [Recovering/Resolving]
  - Furuncle [Unknown]
  - Stomatitis [Unknown]
  - Oral pain [Unknown]
  - Oral discomfort [Unknown]
  - Fatigue [Unknown]
  - Dyspepsia [Unknown]
